FAERS Safety Report 5915367-2 (Version None)
Quarter: 2008Q4

REPORT INFORMATION
  Report Type: 
  Country: None (occurrence: None)
  Receive Date: 20081010
  Receipt Date: 20081007
  Transmission Date: 20090506
  Serious: Yes (Hospitalization)
  Sender: FDA-Public Use
  Company Number: DE-BRISTOL-MYERS SQUIBB COMPANY-14288880

PATIENT
  Age: 70 Year
  Sex: Male
  Weight: 92 kg

DRUGS (7)
  1. CETUXIMAB [Suspect]
     Indication: COLORECTAL CANCER
     Dosage: INITIATED ON 26MAR08.
     Route: 042
     Dates: start: 20080709, end: 20080709
  2. IRINOTECAN HYDROCHLORIDE [Suspect]
     Indication: COLORECTAL CANCER
     Dosage: INITIATED ON 26MAR08.
     Route: 042
     Dates: start: 20080716, end: 20080716
  3. FLUOROURACIL [Suspect]
     Indication: COLORECTAL CANCER
     Dosage: INITIATED ON 26MAR08.
     Route: 042
     Dates: start: 20080716, end: 20080716
  4. FOLINIC ACID [Suspect]
     Indication: COLORECTAL CANCER
     Dosage: INITIATED ON 26MAR08.
     Route: 042
     Dates: start: 20080716, end: 20080716
  5. DEXAMETHASONE [Concomitant]
     Indication: PREMEDICATION
     Dosage: DAY 1 + 8
     Dates: start: 20080326
  6. KEVATRIL [Concomitant]
     Indication: PREMEDICATION
     Dosage: DAY 1 + 3
     Dates: start: 20080326
  7. SOSTRIL [Concomitant]
     Indication: PREMEDICATION
     Dosage: 1 DOSAGE FORM = 1 AMP DAY 1 + 8
     Dates: start: 20080326

REACTIONS (5)
  - LOSS OF CONSCIOUSNESS [None]
  - PULMONARY EMBOLISM [None]
  - SYNCOPE [None]
  - VENOUS THROMBOSIS LIMB [None]
  - VERTIGO [None]
